FAERS Safety Report 5071569-1 (Version None)
Quarter: 2006Q3

REPORT INFORMATION
  Report Type: 
  Country: None (occurrence: None)
  Receive Date: 20060803
  Receipt Date: 20060803
  Transmission Date: 20061208
  Serious: Yes (Hospitalization, Disabling)
  Sender: FDA-Public Use
  Company Number: None

PATIENT
  Age: 50 Year

DRUGS (2)
  1. ZYPREXA [Suspect]
     Indication: ANXIETY
     Dosage: 2 X DAILY PO
     Route: 048
     Dates: start: 20040201, end: 20040501
  2. SEROQUEL [Suspect]
     Indication: DEPRESSION
     Dosage: 1 X DAILY PO
     Route: 048
     Dates: start: 20040201, end: 20040501

REACTIONS (7)
  - ALCOHOLISM [None]
  - CONDITION AGGRAVATED [None]
  - DEPRESSION [None]
  - DISORIENTATION [None]
  - FOOD CRAVING [None]
  - HYPERPHAGIA [None]
  - PARANOIA [None]
